FAERS Safety Report 4842267-1 (Version None)
Quarter: 2005Q4

REPORT INFORMATION
  Report Type: 
  Country: None (occurrence: None)
  Receive Date: 20051125
  Receipt Date: 20051115
  Transmission Date: 20060501
  Serious: Yes (Disabling, Other)
  Sender: FDA-Public Use
  Company Number: 2005156876

PATIENT
  Age: 52 Year
  Sex: Male

DRUGS (7)
  1. VIAGRA [Suspect]
     Indication: ILL-DEFINED DISORDER
     Dosage: 100 MG (50 MG)
  2. NEURONTIN [Concomitant]
  3. NORCO [Concomitant]
  4. OXYCONTIN [Concomitant]
  5. PEPCID [Concomitant]
  6. ASPIRIN [Concomitant]
  7. NSAID'S (NSAID'S) [Concomitant]

REACTIONS (5)
  - BLINDNESS [None]
  - HEADACHE [None]
  - HYPERTENSION [None]
  - OPTIC ISCHAEMIC NEUROPATHY [None]
  - VISION BLURRED [None]
